FAERS Safety Report 10023844 (Version 1)
Quarter: 2014Q1

REPORT INFORMATION
  Report Type: Spontaneous
  Country: US (occurrence: None)
  Receive Date: 20140319
  Receipt Date: 20140319
  Transmission Date: 20141002
  Serious: Yes (Other)
  Sender: FDA-Public Use
  Company Number: None

PATIENT
  Age: 71 Year
  Sex: Female
  Weight: 61.24 kg

DRUGS (9)
  1. LATANOPROST 0.005 % OPHTHALMIC SOLUTION [Suspect]
     Indication: GLAUCOMA
     Dosage: 1 DROP IN EACH EYE QHS.
     Dates: start: 20130930, end: 20131120
  2. LATANOPROST 0.005 % OPHTHALMIC SOLUTION [Suspect]
     Indication: BLINDNESS
     Dosage: 1 DROP IN EACH EYE QHS.
     Dates: start: 20130930, end: 20131120
  3. LATANOPROST 0.005 % OPHTHALMIC SOLUTION [Suspect]
     Indication: PROPHYLAXIS
     Dosage: 1 DROP IN EACH EYE QHS.
     Dates: start: 20130930, end: 20131120
  4. VITAMIN D [Concomitant]
  5. CALCIUM [Concomitant]
  6. MAGENSIUM [Concomitant]
  7. FISH OIL [Concomitant]
  8. PRO-BIOTIC [Concomitant]
  9. ATIVAN [Concomitant]

REACTIONS (3)
  - Intraocular pressure increased [None]
  - Product quality issue [None]
  - Eye burns [None]
